FAERS Safety Report 19592642 (Version 1)
Quarter: 2021Q3

REPORT INFORMATION
  Report Type: Spontaneous
  Country: US (occurrence: US)
  Receive Date: 20210721
  Receipt Date: 20210721
  Transmission Date: 20211014
  Serious: Yes (Hospitalization)
  Sender: FDA-Public Use
  Company Number: None

PATIENT
  Sex: Female

DRUGS (18)
  1. ESTRADIOL CRE [Concomitant]
  2. FLUCONAZOLE. [Concomitant]
     Active Substance: FLUCONAZOLE
  3. ENBREL [Suspect]
     Active Substance: ETANERCEPT
     Indication: ARTHROPATHY
     Dosage: 1 PEN QWK SQ
     Route: 058
     Dates: start: 20210312
  4. HYDROXYCHLOR [Concomitant]
     Active Substance: HYDROXYCHLOROQUINE
  5. MELOXICAM. [Concomitant]
     Active Substance: MELOXICAM
  6. PYRIDIUM [Concomitant]
     Active Substance: PHENAZOPYRIDINE
  7. METHOTREXATE. [Concomitant]
     Active Substance: METHOTREXATE
  8. HYDROCO/APAP [Concomitant]
     Active Substance: ACETAMINOPHEN\HYDROCODONE
  9. NITROFURANTIN [Concomitant]
     Active Substance: NITROFURANTOIN
  10. NYSTATIN. [Concomitant]
     Active Substance: NYSTATIN
  11. ACYCLOVIR. [Concomitant]
     Active Substance: ACYCLOVIR
  12. AMOXICILLIN. [Concomitant]
     Active Substance: AMOXICILLIN
  13. CEFPODOXIME [Concomitant]
     Active Substance: CEFPODOXIME
  14. FIRVANQ [Concomitant]
     Active Substance: VANCOMYCIN HYDROCHLORIDE
  15. VANCOMYCIN [Concomitant]
     Active Substance: VANCOMYCIN
  16. CLINDAMYCIN. [Concomitant]
     Active Substance: CLINDAMYCIN
  17. ONDANSETRON ODT [Concomitant]
     Active Substance: ONDANSETRON
  18. PHENAZOPYRID [Concomitant]

REACTIONS (3)
  - Sepsis [None]
  - Nephrolithiasis [None]
  - Clostridium difficile infection [None]
